FAERS Safety Report 13451849 (Version 3)
Quarter: 2017Q3

REPORT INFORMATION
  Report Type: Report from Study
  Country: CA (occurrence: CA)
  Receive Date: 20170418
  Receipt Date: 20170718
  Transmission Date: 20171127
  Serious: Yes (Death, Hospitalization)
  Sender: FDA-Public Use
  Company Number: CA-ROCHE-1919361

PATIENT
  Age: 75 Year
  Sex: Female

DRUGS (21)
  1. RITUXIMAB. [Suspect]
     Active Substance: RITUXIMAB
     Route: 042
     Dates: start: 20151008
  2. TECTA [Concomitant]
     Active Substance: PANTOPRAZOLE MAGNESIUM
     Route: 048
  3. SEPTRA DS [Concomitant]
     Active Substance: SULFAMETHOXAZOLE\TRIMETHOPRIM
     Dosage: 800-160 10/JUL/2017
     Route: 065
  4. PROLIA [Concomitant]
     Active Substance: DENOSUMAB
     Dosage: DAILY AND MONTHLY
     Route: 058
  5. RITUXIMAB. [Suspect]
     Active Substance: RITUXIMAB
     Route: 042
     Dates: start: 20151015
  6. APIXABAN [Concomitant]
     Active Substance: APIXABAN
     Route: 048
     Dates: start: 20170304, end: 20170408
  7. AMLODIPINE [Concomitant]
     Active Substance: AMLODIPINE BESYLATE
     Route: 048
  8. ADVAIR HFA [Concomitant]
     Active Substance: FLUTICASONE PROPIONATE\SALMETEROL XINAFOATE
  9. NORVASC [Concomitant]
     Active Substance: AMLODIPINE BESYLATE
     Route: 048
  10. LOVENOX [Concomitant]
     Active Substance: ENOXAPARIN SODIUM
     Route: 058
     Dates: start: 20170408
  11. VENTOLIN [Concomitant]
     Active Substance: ALBUTEROL SULFATE
     Route: 048
  12. BECLOMETHASONE [Concomitant]
     Active Substance: BECLOMETHASONE
     Route: 065
  13. RITUXIMAB. [Suspect]
     Active Substance: RITUXIMAB
     Route: 042
     Dates: start: 20151001
  14. RITUXIMAB. [Suspect]
     Active Substance: RITUXIMAB
     Route: 042
     Dates: start: 20151022
  15. FLUOROMETHOLONE. [Concomitant]
     Active Substance: FLUOROMETHOLONE
     Dosage: 0.1 SUSP.
     Route: 048
  16. HCTZ [Concomitant]
     Active Substance: HYDROCHLOROTHIAZIDE
  17. PREDNISONE. [Concomitant]
     Active Substance: PREDNISONE
     Route: 065
     Dates: start: 20170216
  18. SULFAMETHOXAZOLE [Concomitant]
     Active Substance: SULFAMETHOXAZOLE
  19. FOLIC ACID. [Concomitant]
     Active Substance: FOLIC ACID
  20. WARFARIN [Concomitant]
     Active Substance: WARFARIN
  21. RITUXIMAB. [Suspect]
     Active Substance: RITUXIMAB
     Indication: ANTI-NEUTROPHIL CYTOPLASMIC ANTIBODY POSITIVE VASCULITIS
     Dosage: ON 16/FEB/2017, SHE RECEIVED LAST DOSE OF RITUXIMAB PRIOR TO SERIOUS ADVERSE EVENT (SAE).
     Route: 042
     Dates: start: 20160218, end: 20170216

REACTIONS (2)
  - Pancreatic carcinoma [Fatal]
  - Asthenia [Not Recovered/Not Resolved]

NARRATIVE: CASE EVENT DATE: 20170407
